FAERS Safety Report 4584294-8 (Version None)
Quarter: 2005Q1

REPORT INFORMATION
  Report Type: 
  Country: None (occurrence: None)
  Receive Date: 20050125
  Receipt Date: 20041026
  Transmission Date: 20050727
  Serious: No
  Sender: FDA-Public Use
  Company Number: USA041082294

PATIENT
  Age: 63 Year
  Sex: Female
  Weight: 68 kg

DRUGS (13)
  1. FORTEO [Suspect]
     Indication: SPINAL DISORDER
     Dosage: 20 UG/1DAY
     Dates: start: 20040927
  2. ACIPHEX [Concomitant]
  3. ACTONEL [Concomitant]
  4. PREDNISONE [Concomitant]
  5. MOBIC [Concomitant]
  6. SOMA [Concomitant]
  7. CELEXA [Concomitant]
  8. DURAGESIC [Concomitant]
  9. NEURONTIN (GABAPENTIN PFIZER) [Concomitant]
  10. SKELAXIN [Concomitant]
  11. LASIX [Concomitant]
  12. ASPIRIN [Concomitant]
  13. OXYCODONE [Concomitant]

REACTIONS (3)
  - ARTHRALGIA [None]
  - PAIN IN EXTREMITY [None]
  - PYREXIA [None]
